FAERS Safety Report 9852723 (Version 1)
Quarter: 2014Q1

REPORT INFORMATION
  Report Type: Spontaneous
  Country: PR (occurrence: None)
  Receive Date: 20140127
  Receipt Date: 20140127
  Transmission Date: 20141002
  Serious: Yes (Death, Hospitalization)
  Sender: FDA-Public Use
  Company Number: DSU-2014-00135

PATIENT
  Sex: 0

DRUGS (3)
  1. TRIBENZOR [Suspect]
     Indication: HYPERTENSION
     Dosage: 40/10/25 MG, (QD), PER ORAL
     Route: 048
  2. BETA BLOCKER (BETA BLOCKING AGENTS) [Concomitant]
  3. UNKNOWN STATIN [INGREDIENTS UNKNOWN] [Concomitant]

REACTIONS (1)
  - Death [None]
